FAERS Safety Report 10182532 (Version 1)
Quarter: 2014Q2

REPORT INFORMATION
  Report Type: Spontaneous
  Country: US (occurrence: None)
  Receive Date: 20140519
  Receipt Date: 20140519
  Transmission Date: 20141212
  Serious: Yes (Life-Threatening, Disabling)
  Sender: FDA-Public Use
  Company Number: None

PATIENT
  Age: 62 Year
  Sex: Male
  Weight: 127.01 kg

DRUGS (1)
  1. HUMALOG KWIKPENS [Suspect]

REACTIONS (5)
  - Device failure [None]
  - Syringe issue [None]
  - Product quality issue [None]
  - Product container seal issue [None]
  - Drug dose omission [None]
